FAERS Safety Report 9940876 (Version 1)
Quarter: 2014Q1

REPORT INFORMATION
  Report Type: Spontaneous
  Country: JP (occurrence: JP)
  Receive Date: 20140303
  Receipt Date: 20140303
  Transmission Date: 20141002
  Serious: Yes (Other)
  Sender: FDA-Public Use
  Company Number: JP-PFIZER INC-2014057187

PATIENT
  Sex: Female

DRUGS (2)
  1. XALATAN [Suspect]
     Dosage: IN EYE, UNKNOWN
     Route: 047
  2. CRAVIT [Concomitant]
     Dosage: IN EYE, UNK
     Route: 047

REACTIONS (1)
  - Cataract [Unknown]
